FAERS Safety Report 4640029-1 (Version None)
Quarter: 2005Q2

REPORT INFORMATION
  Report Type: 
  Country: None (occurrence: None)
  Receive Date: 20050415
  Receipt Date: 20050415
  Transmission Date: 20051028
  Serious: No
  Sender: FDA-Public Use
  Company Number: None

PATIENT
  Sex: Female
  Weight: 72.1219 kg

DRUGS (6)
  1. ELOXATIN [Suspect]
     Indication: PANCREATIC CARCINOMA
     Dosage: 135 MG Q 2 WKS INTRAVENOUS
     Route: 042
     Dates: start: 20040805, end: 20050414
  2. ELOXATIN [Suspect]
  3. CALCIUM GLUCONATE [Concomitant]
  4. MAGNESIUM SULFATE [Concomitant]
  5. DEXAMETHASONE [Concomitant]
  6. PALONOSETRON [Concomitant]

REACTIONS (5)
  - BRADYCARDIA [None]
  - DRUG HYPERSENSITIVITY [None]
  - FLUSHING [None]
  - HYPOXIA [None]
  - NAUSEA [None]
